FAERS Safety Report 7602104-9 (Version None)
Quarter: 2011Q3

REPORT INFORMATION
  Report Type: 
  Country: None (occurrence: None)
  Receive Date: 20110711
  Receipt Date: 20110711
  Transmission Date: 20111222
  Serious: No
  Sender: FDA-Public Use
  Company Number: None

PATIENT
  Sex: Female

DRUGS (1)
  1. FLUTICASONE PROPIONATE [Suspect]
     Indication: NASAL CONGESTION
     Dosage: 1-2 SPRAYS
     Route: 045
     Dates: start: 20110608, end: 20110621

REACTIONS (2)
  - ANOSMIA [None]
  - AGEUSIA [None]
